FAERS Safety Report 26083144 (Version 1)
Quarter: 2025Q4

REPORT INFORMATION
  Report Type: Spontaneous
  Country: EU (occurrence: EU)
  Receive Date: 20251124
  Receipt Date: 20251124
  Transmission Date: 20260118
  Serious: Yes (Hospitalization, Disabling)
  Sender: PFIZER
  Company Number: None

PATIENT
  Age: 29 Year
  Sex: Female
  Weight: 60 kg

DRUGS (2)
  1. ETHINYL ESTRADIOL\LEVONORGESTREL [Suspect]
     Active Substance: ETHINYL ESTRADIOL\LEVONORGESTREL
     Indication: Contraception
     Dosage: 1 DF
     Route: 048
     Dates: end: 202402
  2. ETHINYL ESTRADIOL\LEVONORGESTREL [Suspect]
     Active Substance: ETHINYL ESTRADIOL\LEVONORGESTREL
     Indication: Contraception
     Dosage: 1 DF
     Route: 048
     Dates: start: 202402, end: 20250306

REACTIONS (1)
  - Peripheral arterial occlusive disease [Recovered/Resolved with Sequelae]

NARRATIVE: CASE EVENT DATE: 20240115
